FAERS Safety Report 8621614-9 (Version None)
Quarter: 2012Q3

REPORT INFORMATION
  Report Type: 
  Country: None (occurrence: None)
  Receive Date: 20120820
  Receipt Date: 20120820
  Transmission Date: 20120928
  Serious: Yes (Hospitalization)
  Sender: FDA-Public Use
  Company Number: None

PATIENT
  Sex: Female
  Weight: 81.14 kg

DRUGS (2)
  1. TAXOL [Suspect]
     Dosage: 320 MG
  2. CARBOPLATIN [Suspect]
     Dosage: 625 MG

REACTIONS (1)
  - HAEMOGLOBIN DECREASED [None]
